FAERS Safety Report 10733917 (Version 1)
Quarter: 2015Q1

REPORT INFORMATION
  Report Type: Spontaneous
  Country: IT (occurrence: IT)
  Receive Date: 20150123
  Receipt Date: 20150123
  Transmission Date: 20150721
  Serious: Yes (Life-Threatening, Hospitalization, Other)
  Sender: FDA-Public Use
  Company Number: IT-ROXANE LABORATORIES, INC.-2015-RO-00085RO

PATIENT
  Age: 52 Year
  Sex: Male

DRUGS (5)
  1. SAQUINAVIR [Suspect]
     Active Substance: SAQUINAVIR
     Indication: HIV INFECTION
     Route: 065
     Dates: start: 2007
  2. RITONAVIR. [Suspect]
     Active Substance: RITONAVIR
     Indication: HIV INFECTION
     Dosage: 100 MG
     Route: 065
     Dates: start: 2007
  3. IOMEPROL [Suspect]
     Active Substance: IOMEPROL
     Indication: ANGIOGRAM
     Route: 065
  4. ZIDOVUDINE. [Suspect]
     Active Substance: ZIDOVUDINE
     Indication: HIV INFECTION
     Dosage: 600 MG
     Route: 065
     Dates: start: 2007
  5. LAMIVUDINE. [Suspect]
     Active Substance: LAMIVUDINE
     Indication: HIV INFECTION
     Dosage: 300 MG
     Route: 065
     Dates: start: 2007

REACTIONS (3)
  - Rhabdomyolysis [Recovered/Resolved]
  - Mitochondrial DNA mutation [Unknown]
  - Myocardial ischaemia [Recovered/Resolved]
